FAERS Safety Report 7962853-X (Version None)
Quarter: 2011Q4

REPORT INFORMATION
  Report Type: 
  Country: None (occurrence: None)
  Receive Date: 20111207
  Receipt Date: 20111201
  Transmission Date: 20120403
  Serious: No
  Sender: FDA-Public Use
  Company Number: US-B.I. PHARMACEUTICALS,INC./RIDGEFIELD-2011-BP-27191BP

PATIENT
  Sex: Female

DRUGS (6)
  1. PAXIL [Concomitant]
     Indication: ANTIDEPRESSANT THERAPY
     Dosage: 20 MG
     Route: 048
  2. MULTIVITAMIN [Concomitant]
     Indication: SUPPLEMENTATION THERAPY
     Route: 048
  3. ZANTAC 150 [Suspect]
     Indication: DYSPHAGIA
     Dosage: 300 MG
     Route: 048
  4. PRAVASTATIN [Concomitant]
     Indication: BLOOD CHOLESTEROL INCREASED
     Dosage: 40 MG
     Route: 048
  5. LEVOTHYROXINE SODIUM [Concomitant]
     Indication: HYPOTHYROIDISM
     Dosage: 50 MCG
     Route: 048
  6. CALCIUM [Concomitant]
     Indication: MINERAL SUPPLEMENTATION
     Route: 048

REACTIONS (1)
  - GASTRITIS EROSIVE [None]
